FAERS Safety Report 17286436 (Version 2)
Quarter: 2020Q1

REPORT INFORMATION
  Report Type: Report from Study
  Country: KR (occurrence: KR)
  Receive Date: 20200118
  Receipt Date: 20200130
  Transmission Date: 20200409
  Serious: Yes (Hospitalization)
  Sender: FDA-Public Use
  Company Number: KR-ALEXION PHARMACEUTICALS INC.-A202000270

PATIENT
  Age: 39 Year
  Sex: Male
  Weight: 77 kg

DRUGS (13)
  1. SOLONDO [Concomitant]
     Active Substance: PREDNISOLONE
     Dosage: 30 MG, QOD
     Route: 048
     Dates: start: 20190620
  2. DICAMAX D PLUS [Concomitant]
     Indication: OSTEOPENIA
     Dosage: 1 OTHER, QD
     Route: 048
     Dates: start: 20190309
  3. PROGRAF [Concomitant]
     Active Substance: TACROLIMUS
     Indication: MYASTHENIA GRAVIS
     Dosage: 2 MG, BID
     Route: 048
     Dates: start: 20190327
  4. DOSMIN                             /00221802/ [Concomitant]
     Indication: MYASTHENIA GRAVIS
     Dosage: 60 MG, QD
     Route: 048
     Dates: start: 20191120
  5. DOSMIN                             /00221802/ [Concomitant]
     Dosage: 60 MG, QD
     Route: 048
     Dates: start: 20191205, end: 20191218
  6. BLINDED PLACEBO [Suspect]
     Active Substance: INVESTIGATIONAL PRODUCT
     Dosage: UNK
     Route: 042
     Dates: start: 20191205
  7. DOSMIN                             /00221802/ [Concomitant]
     Dosage: 90 MG, TID
     Route: 048
     Dates: start: 20191205, end: 20191223
  8. BLINDED PLACEBO [Suspect]
     Active Substance: INVESTIGATIONAL PRODUCT
     Indication: MYASTHENIA GRAVIS
     Dosage: UNK
     Route: 042
     Dates: start: 20190926
  9. DOSMIN                             /00221802/ [Concomitant]
     Dosage: 90 ?G, TID
     Route: 048
     Dates: start: 20191231
  10. DOSMIN                             /00221802/ [Concomitant]
     Dosage: 90 ?G, QID
     Route: 048
     Dates: start: 20191224, end: 20191230
  11. BLINDED ALXN1210(RAVULIZUMAB)300 MG (10 MG/ML) [Suspect]
     Active Substance: RAVULIZUMAB
     Dosage: UNK
     Route: 042
     Dates: start: 20191205
  12. SOLONDO [Concomitant]
     Active Substance: PREDNISOLONE
     Indication: MYASTHENIA GRAVIS
     Dosage: 25 MG, QOD
     Route: 048
     Dates: start: 20190228
  13. BLINDED ALXN1210(RAVULIZUMAB)300 MG (10 MG/ML) [Suspect]
     Active Substance: RAVULIZUMAB
     Indication: MYASTHENIA GRAVIS
     Dosage: UNK
     Route: 042
     Dates: start: 20190926

REACTIONS (1)
  - Soft tissue mass [Recovered/Resolved]

NARRATIVE: CASE EVENT DATE: 20200107
